FAERS Safety Report 8070395-9 (Version None)
Quarter: 2012Q1

REPORT INFORMATION
  Report Type: 
  Country: None (occurrence: None)
  Receive Date: 20120125
  Receipt Date: 20120116
  Transmission Date: 20120608
  Serious: Yes (Hospitalization)
  Sender: FDA-Public Use
  Company Number: JP-JNJFOC-20111202103

PATIENT
  Sex: Female
  Weight: 45 kg

DRUGS (10)
  1. REMICADE [Suspect]
     Dosage: 1.5 VIA
     Route: 042
     Dates: start: 20061106
  2. EVISTA [Concomitant]
     Route: 048
  3. METHOTREXATE [Suspect]
     Indication: RHEUMATOID ARTHRITIS
     Route: 048
     Dates: start: 20061106
  4. ZANTAC [Concomitant]
     Indication: RHEUMATOID ARTHRITIS
     Dosage: 150 DF
     Route: 048
  5. FOLIC ACID [Concomitant]
     Indication: RHEUMATOID ARTHRITIS
     Route: 048
  6. REMICADE [Suspect]
     Indication: RHEUMATOID ARTHRITIS
     Dosage: 1.5 VIA, THE PATIENT RECEIVED 35 DOSES
     Route: 042
  7. NORVASC [Concomitant]
     Indication: HYPERTENSION
     Route: 048
     Dates: start: 20061106
  8. ISONIAZID [Concomitant]
     Indication: RHEUMATOID ARTHRITIS
     Route: 048
  9. RISEDRONATE SODIUM [Concomitant]
     Indication: RHEUMATOID ARTHRITIS
     Route: 048
  10. LOXONIN [Concomitant]
     Indication: RHEUMATOID ARTHRITIS
     Route: 048

REACTIONS (1)
  - SMALL CELL LUNG CANCER STAGE UNSPECIFIED [None]
